FAERS Safety Report 8479755-5 (Version None)
Quarter: 2012Q2

REPORT INFORMATION
  Report Type: 
  Country: None (occurrence: None)
  Receive Date: 20120620
  Receipt Date: 20120502
  Transmission Date: 20120825
  Serious: Yes (Other)
  Sender: FDA-Public Use
  Company Number: 2012SP018057

PATIENT
  Age: 71 Year
  Sex: Female
  Weight: 70 kg

DRUGS (8)
  1. INTRON A [Suspect]
     Indication: MALIGNANT MELANOMA
     Dosage: ; QW;SC
     Route: 058
     Dates: start: 20110330, end: 20120316
  2. ... [Concomitant]
  3. ... [Concomitant]
     Indication: TYPE 2 DIABETES MELLITUS
     Dosage: 3 MG/DAILY/ PO
     Route: 048
     Dates: end: 20100928
  4. ... [Concomitant]
     Indication: TYPE 2 DIABETES MELLITUS
     Dosage: 25C MG/DAILY/ PO
     Route: 048
     Dates: end: 20100928
  5. ... [Concomitant]
  6. ... [Concomitant]
     Indication: TYPE 2 DIABETES MELLITUS
     Dosage: 30 MG/DAILY/PO
     Route: 048
     Dates: end: 20100928
  7. ... [Concomitant]
  8. ... [Concomitant]

REACTIONS (5)
  - MYALGIA [None]
  - ARTHRALGIA [None]
  - LABORATORY TEST ABNORMAL [None]
  - ANTI-CYCLIC CITRULLINATED PEPTIDE ANTIBODY POSITIVE [None]
  - RHEUMATOID FACTOR INCREASED [None]
